FAERS Safety Report 18239608 (Version 1)
Quarter: 2020Q3

REPORT INFORMATION
  Report Type: Report from Study
  Country: None (occurrence: US)
  Receive Date: 20200907
  Receipt Date: 20200907
  Transmission Date: 20201103
  Serious: Yes (Other)
  Sender: FDA-Public Use
  Company Number: US-ABBVIE-20K-163-3547587-00

PATIENT
  Age: 59 Year
  Sex: Female

DRUGS (1)
  1. CREON [Suspect]
     Active Substance: PANCRELIPASE AMYLASE\PANCRELIPASE LIPASE\PANCRELIPASE PROTEASE
     Indication: PRODUCT USED FOR UNKNOWN INDICATION
     Route: 048

REACTIONS (13)
  - Limb operation [Unknown]
  - Limb operation [Unknown]
  - Elbow operation [Unknown]
  - Gastric ulcer [Unknown]
  - Chronic obstructive pulmonary disease [Unknown]
  - Colitis [Unknown]
  - Intestinal perforation [Unknown]
  - Ankle operation [Unknown]
  - Knee operation [Unknown]
  - Hip surgery [Unknown]
  - Renal transplant [Unknown]
  - Wrist surgery [Unknown]
  - Crohn^s disease [Unknown]

NARRATIVE: CASE EVENT DATE: 1970
